FAERS Safety Report 19994311 (Version 4)
Quarter: 2022Q1

REPORT INFORMATION
  Report Type: Report from Study
  Country: CO (occurrence: CO)
  Receive Date: 20211026
  Receipt Date: 20220117
  Transmission Date: 20220423
  Serious: Yes (Hospitalization, Other)
  Sender: FDA-Public Use
  Company Number: CO-NOVARTISPH-NVSC2021CO238040

PATIENT
  Sex: Male
  Weight: 70 kg

DRUGS (4)
  1. MEKINIST [Suspect]
     Active Substance: TRAMETINIB DIMETHYL SULFOXIDE
     Indication: Metastatic malignant melanoma
     Dosage: 2 MG, QD
     Route: 048
     Dates: start: 202007
  2. MEKINIST [Suspect]
     Active Substance: TRAMETINIB DIMETHYL SULFOXIDE
     Dosage: UNK
     Route: 048
  3. TAFINLAR [Suspect]
     Active Substance: DABRAFENIB MESYLATE
     Indication: Metastatic malignant melanoma
     Dosage: 75 MG (2 IN THE MORNING AND 2 AT NIGHT)
     Route: 048
     Dates: start: 202007
  4. TAFINLAR [Suspect]
     Active Substance: DABRAFENIB MESYLATE
     Dosage: UNK
     Route: 048

REACTIONS (17)
  - Brain neoplasm [Unknown]
  - Thrombosis [Unknown]
  - Loss of consciousness [Unknown]
  - Feeling abnormal [Unknown]
  - Chest injury [Unknown]
  - Syncope [Unknown]
  - Atrophy [Unknown]
  - Effusion [Unknown]
  - Movement disorder [Unknown]
  - Fall [Unknown]
  - Illness [Unknown]
  - Inflammation [Not Recovered/Not Resolved]
  - Asthenia [Not Recovered/Not Resolved]
  - Dizziness [Not Recovered/Not Resolved]
  - Erythema [Not Recovered/Not Resolved]
  - Pain in extremity [Unknown]
  - Musculoskeletal chest pain [Unknown]
